FAERS Safety Report 11572221 (Version 1)
Quarter: 2015Q3

REPORT INFORMATION
  Report Type: Spontaneous
  Country: AT (occurrence: AT)
  Receive Date: 20150929
  Receipt Date: 20150929
  Transmission Date: 20151125
  Serious: Yes (Death, Hospitalization)
  Sender: FDA-Public Use
  Company Number: PHHY2015AT115601

PATIENT
  Age: 85 Year
  Sex: Female

DRUGS (1)
  1. METHOTREXATE (METHOTREXATE SODIUM) [Suspect]
     Active Substance: METHOTREXATE SODIUM
     Indication: PRODUCT USED FOR UNKNOWN INDICATION
     Dosage: 1 DF, ONCE8SDO
     Route: 048
     Dates: start: 20150421, end: 20150421

REACTIONS (10)
  - Transaminases increased [Unknown]
  - Anaemia [Fatal]
  - Renal failure [Fatal]
  - Leukopenia [Fatal]
  - Headache [Unknown]
  - Dizziness [Unknown]
  - Incorrect dose administered [Unknown]
  - Overdose [Fatal]
  - Pyrexia [Unknown]
  - Nausea [Unknown]

NARRATIVE: CASE EVENT DATE: 20150421
